FAERS Safety Report 5330426-3 (Version None)
Quarter: 2007Q2

REPORT INFORMATION
  Report Type: 
  Country: None (occurrence: None)
  Receive Date: 20070515
  Receipt Date: 20070502
  Transmission Date: 20071010
  Serious: Yes (Disabling)
  Sender: FDA-Public Use
  Company Number: 2217-132

PATIENT
  Age: 44 Year
  Sex: Female

DRUGS (2)
  1. TRIAMCINOLONE ACETONIDE [Suspect]
     Indication: SCLERITIS
  2. CORTICOSTEROID [Concomitant]

REACTIONS (5)
  - BLINDNESS UNILATERAL [None]
  - ENDOPHTHALMITIS [None]
  - EYE ABSCESS [None]
  - EYE INFECTION FUNGAL [None]
  - VITREOUS DISORDER [None]
